FAERS Safety Report 8503043-1 (Version None)
Quarter: 2012Q3

REPORT INFORMATION
  Report Type: 
  Country: None (occurrence: None)
  Receive Date: 20120711
  Receipt Date: 20120702
  Transmission Date: 20120928
  Serious: Yes (Death, Hospitalization, Other)
  Sender: FDA-Public Use
  Company Number: US-ELI_LILLY_AND_COMPANY-US201205000495

PATIENT
  Age: 76 Year
  Sex: Female
  Weight: 40.8 kg

DRUGS (13)
  1. BUDESONIDE [Concomitant]
  2. HYDROXYZINE [Concomitant]
  3. VITAMIN B-12 [Concomitant]
  4. ASPIRIN [Concomitant]
  5. NAMENDA [Concomitant]
  6. CARAFATE [Concomitant]
  7. PERFOROMIST [Concomitant]
  8. FORTEO [Suspect]
     Indication: OSTEOPOROSIS
     Dosage: 20 UG, QD
     Route: 058
     Dates: start: 20110501
  9. CALCIUM + VITAMIN D [Concomitant]
  10. FLUOXETINE [Concomitant]
  11. KLONOPIN [Concomitant]
  12. OMEPRAZOLE [Concomitant]
  13. ZANTAC [Concomitant]

REACTIONS (6)
  - DEATH [None]
  - PNEUMONIA [None]
  - ASPIRATION [None]
  - OXYGEN CONSUMPTION DECREASED [None]
  - GASTRIC POLYPS [None]
  - BLOOD PRESSURE DECREASED [None]
